FAERS Safety Report 5557419-5 (Version None)
Quarter: 2007Q4

REPORT INFORMATION
  Report Type: 
  Country: None (occurrence: None)
  Receive Date: 20071211
  Receipt Date: 20071126
  Transmission Date: 20080405
  Serious: Yes (Hospitalization, Other)
  Sender: FDA-Public Use
  Company Number: 2007EU002178

PATIENT
  Age: 12 Year
  Sex: Male
  Weight: 36 kg

DRUGS (7)
  1. PROGRAF [Suspect]
     Indication: NEPHROTIC SYNDROME
     Dosage: 6 MG, /D, ORAL
     Route: 048
     Dates: start: 20050513, end: 20050518
  2. MODAMIDE (AMILORIDE HYDROCHLORIDE) [Concomitant]
  3. LASIX [Concomitant]
  4. ASPEGIC 1000 [Concomitant]
  5. CALTRATE (VITAMIN D NOS, CALCIUM) [Concomitant]
  6. UN-ALFA (ALFACALCIDOL) [Concomitant]
  7. ADALAT [Concomitant]

REACTIONS (6)
  - HAEMODIALYSIS [None]
  - HEADACHE [None]
  - HEMIANOPIA [None]
  - HYPERTENSION [None]
  - LEUKOENCEPHALOPATHY [None]
  - VOMITING [None]
